FAERS Safety Report 18610901 (Version 2)
Quarter: 2021Q1

REPORT INFORMATION
  Report Type: Spontaneous
  Country: FR (occurrence: FR)
  Receive Date: 20201214
  Receipt Date: 20210112
  Transmission Date: 20210419
  Serious: Yes (Other)
  Sender: FDA-Public Use
  Company Number: FR-PFIZER INC-2020489715

PATIENT
  Age: 17 Year
  Sex: Male
  Weight: 67 kg

DRUGS (20)
  1. MYCOSTATINE [Concomitant]
     Active Substance: NYSTATIN
     Dosage: UNK
  2. DEBRIDAT [TRIMEBUTINE MALEATE] [Concomitant]
     Active Substance: TRIMEBUTINE MALEATE
     Dosage: UNK
  3. PLITICAN [Concomitant]
     Active Substance: ALIZAPRIDE HYDROCHLORIDE
     Dosage: UNK
  4. MORPHINE RENAUDIN [Concomitant]
     Active Substance: MORPHINE
     Dosage: UNK
  5. DAPTOMYCIN. [Suspect]
     Active Substance: DAPTOMYCIN
     Indication: INFECTION
     Dosage: 750 MG, DAILY
     Route: 042
     Dates: start: 20200903, end: 20200917
  6. AMBISOME [Suspect]
     Active Substance: AMPHOTERICIN B
     Indication: ANTIFUNGAL TREATMENT
     Dosage: 230 MG, DAILY
     Route: 042
     Dates: start: 20200904, end: 20200917
  7. GRANOCYTE [Concomitant]
     Active Substance: LENOGRASTIM
     Dosage: UNK
  8. VITAMIN K [Concomitant]
     Active Substance: PHYTONADIONE
     Dosage: UNK
  9. KETAMINE RENAUDIN [Concomitant]
     Active Substance: KETAMINE
     Dosage: UNK
  10. ZOPHREN [ONDANSETRON HYDROCHLORIDE] [Concomitant]
     Active Substance: ONDANSETRON
     Dosage: UNK
  11. PANTOPRAZOLE [Suspect]
     Active Substance: PANTOPRAZOLE
     Indication: GASTROINTESTINAL HAEMORRHAGE
     Dosage: 80 MG, DAILY
     Route: 048
     Dates: start: 20200912, end: 20200917
  12. AMIKACINE [AMIKACIN SULFATE] [Suspect]
     Active Substance: AMIKACIN SULFATE
     Indication: INFECTION
     Dosage: UNK
     Route: 042
     Dates: start: 20200910, end: 20200911
  13. MEROPENEM PANPHARMA [Suspect]
     Active Substance: MEROPENEM
     Indication: INFECTION
     Dosage: 3 G, DAILY
     Route: 042
     Dates: start: 20200910, end: 20200917
  14. ATARAX [Concomitant]
     Active Substance: HYDROXYZINE HYDROCHLORIDE
     Dosage: UNK
  15. NEFOPAM MEDISOL [Concomitant]
     Active Substance: NEFOPAM HYDROCHLORIDE
     Dosage: UNK
  16. AMLODIPINE [Concomitant]
     Active Substance: AMLODIPINE BESYLATE
     Dosage: UNK
  17. LOXEN [NICARDIPINE HYDROCHLORIDE] [Concomitant]
     Active Substance: NICARDIPINE HYDROCHLORIDE
     Dosage: UNK
  18. NALBUPHINE [NALBUPHINE HYDROCHLORIDE] [Concomitant]
     Dosage: UNK
  19. PANTOPRAZOLE SODIUM. [Suspect]
     Active Substance: PANTOPRAZOLE SODIUM
     Indication: GASTROINTESTINAL HAEMORRHAGE
     Dosage: UNK
     Route: 042
     Dates: start: 20200909, end: 20200911
  20. PARACETAMOL [Concomitant]
     Active Substance: ACETAMINOPHEN
     Dosage: UNK

REACTIONS (1)
  - Drug reaction with eosinophilia and systemic symptoms [Recovered/Resolved]

NARRATIVE: CASE EVENT DATE: 20200916
